FAERS Safety Report 15030179 (Version 1)
Quarter: 2018Q2

REPORT INFORMATION
  Report Type: Spontaneous
  Country: DE (occurrence: DE)
  Receive Date: 20180619
  Receipt Date: 20180619
  Transmission Date: 20180711
  Serious: Yes (Hospitalization)
  Sender: FDA-Public Use
  Company Number: DE-TEVA-2018-DE-907613

PATIENT
  Age: 80 Year
  Sex: Female
  Weight: 85.9 kg

DRUGS (22)
  1. XIPAMID [Suspect]
     Active Substance: XIPAMIDE
     Dosage: 10 MG, 1-0-0-0, TABLETTEN
     Route: 048
  2. PANTOPRAZOL [Concomitant]
     Active Substance: PANTOPRAZOLE SODIUM
     Dosage: 40 MG, 1-0-0-0, TABLETTEN
     Route: 048
  3. KALINOR-RETARD P 600MG [Concomitant]
     Dosage: 600 MG, 3-2-2-0, KAPSELN
     Route: 048
  4. LEVOTHYROXIN-NATRIUM [Concomitant]
     Active Substance: LEVOTHYROXINE SODIUM
     Dosage: 150 ?G, 1-0-0-0, TABLETTEN
     Route: 048
  5. BENFOTIAMIN [Concomitant]
     Dosage: 0-1-0-0, TABLETTEN
     Route: 048
  6. NEBIVOLOL. [Concomitant]
     Active Substance: NEBIVOLOL
     Dosage: 5 MG, 1-0-1-0, TABLETTEN
     Route: 048
  7. TORASEMID [Concomitant]
     Active Substance: TORSEMIDE
     Dosage: 100 MG, 1-1-0-0, TABLETTEN
     Route: 048
  8. INSULIN GLULISIN [Concomitant]
     Dosage: TO BZ, INJECTION/INFUSION SOLUTION
     Route: 058
  9. CYANOCOBALAMIN. [Concomitant]
     Active Substance: CYANOCOBALAMIN
     Dosage: 1-0-0-0, TABLETTEN
     Route: 048
  10. GABAPENTIN. [Concomitant]
     Active Substance: GABAPENTIN
     Dosage: 100 MG, 2-2-0-0, TABLETTEN
     Route: 048
  11. INSULIN GLARGIN [Concomitant]
     Active Substance: INSULIN GLARGINE
     Dosage: 26 IE, 0-0-0-1, INJECTION/INFUSION SOLUTION
     Route: 058
  12. ATORVASTATIN [Concomitant]
     Active Substance: ATORVASTATIN
     Dosage: 40 MG, 0-0-1-0, TABLETTEN
     Route: 048
  13. PHENPROCOUMON [Concomitant]
     Active Substance: PHENPROCOUMON
     Dosage: 3 MG, NACH INR, TABLETTEN
     Route: 048
  14. CALCITRIOL. [Suspect]
     Active Substance: CALCITRIOL
     Dosage: 0.25 ?G, 1-0-0-0, KAPSELN
     Route: 048
  15. CALCIUM [Suspect]
     Active Substance: CALCIUM
     Dosage: 600 MG, 1-0-0-0, TABLETTEN
     Route: 048
  16. ACETYLSALICYLSAEURE [Concomitant]
     Active Substance: ASPIRIN
     Dosage: 100 MG, 1-0-0-0, TABLETTEN
     Route: 048
  17. ALLOPURINOL. [Concomitant]
     Active Substance: ALLOPURINOL
     Dosage: 100 MG, 1-0-0-0, TABLETTEN
     Route: 048
  18. DIGITOXIN [Concomitant]
     Active Substance: DIGITOXIN
     Dosage: 0.05 MG, 1-0-0-0, TABLETTEN
     Route: 048
  19. SITAGLIPTIN [Concomitant]
     Active Substance: SITAGLIPTIN
     Dosage: 25 MG, 1-0-0-0, TABLETTEN
     Route: 048
  20. HYDROCHLOROTHIAZIDE. [Suspect]
     Active Substance: HYDROCHLOROTHIAZIDE
     Dosage: 25 MG, 1-0-0-0, TABLETTEN
     Route: 048
  21. CORVATON 8MG [Concomitant]
     Dosage: 8 MG, 1-0-1-0, TABLETTEN
     Route: 048
  22. SPIRONOLACTON [Concomitant]
     Active Substance: SPIRONOLACTONE
     Dosage: 50 MG, 1-0-0-0, TABLETTEN
     Route: 048

REACTIONS (7)
  - Acute kidney injury [Unknown]
  - Medication monitoring error [Unknown]
  - Gait disturbance [Unknown]
  - General physical health deterioration [Unknown]
  - Fatigue [Unknown]
  - Hypercalcaemia [Unknown]
  - Drug prescribing error [Unknown]
